FAERS Safety Report 4851599-2 (Version None)
Quarter: 2005Q4

REPORT INFORMATION
  Report Type: 
  Country: None (occurrence: None)
  Receive Date: 20051212
  Receipt Date: 20051201
  Transmission Date: 20060501
  Serious: Yes (Other)
  Sender: FDA-Public Use
  Company Number: PHRM2005FR03158

PATIENT
  Age: 70 Year
  Sex: Male

DRUGS (3)
  1. ZOMETA [Suspect]
     Indication: MULTIPLE MYELOMA
     Route: 042
     Dates: start: 20031101, end: 20050901
  2. ALKERAN [Concomitant]
     Indication: MULTIPLE MYELOMA
     Dates: start: 20031101
  3. CORTICOSTEROID NOS [Concomitant]
     Indication: MULTIPLE MYELOMA
     Dates: start: 20031101

REACTIONS (6)
  - BONE PAIN [None]
  - OSTEOMYELITIS [None]
  - OSTEONECROSIS [None]
  - TOOTH DISORDER [None]
  - TOOTH EXTRACTION [None]
  - WOUND DEBRIDEMENT [None]
